FAERS Safety Report 5216770-9 (Version None)
Quarter: 2007Q1

REPORT INFORMATION
  Report Type: 
  Country: None (occurrence: None)
  Receive Date: 20070118
  Receipt Date: 20070111
  Transmission Date: 20070707
  Serious: Yes (Death)
  Sender: FDA-Public Use
  Company Number: MEDI-0005285

PATIENT
  Age: 3 Month
  Sex: Male

DRUGS (1)
  1. SYNAGIS [Suspect]
     Indication: ANTIVIRAL PROPHYLAXIS
     Dosage: 60 MG, 1 IN 1 D, INTRAMUSCULAR
     Route: 030
     Dates: start: 20061013, end: 20061220

REACTIONS (4)
  - CARDIO-RESPIRATORY ARREST [None]
  - RESPIRATORY SYNCYTIAL VIRUS INFECTION [None]
  - SUDDEN INFANT DEATH SYNDROME [None]
  - VIRUS SEROLOGY TEST POSITIVE [None]
